FAERS Safety Report 23178244 (Version 1)
Quarter: 2023Q4

REPORT INFORMATION
  Report Type: Spontaneous
  Country: CA (occurrence: CA)
  Receive Date: 20231113
  Receipt Date: 20231113
  Transmission Date: 20240110
  Serious: Yes (Other)
  Sender: FDA-Public Use
  Company Number: CA-MYLANLABS-2023M1120694

PATIENT
  Sex: Female

DRUGS (1)
  1. TRASTUZUMAB [Suspect]
     Active Substance: TRASTUZUMAB
     Indication: HER2 positive breast cancer
     Dosage: 178 MILLIGRAM, Q3W
     Route: 042

REACTIONS (5)
  - Blood glucose increased [Unknown]
  - Hypoglycaemia [Unknown]
  - Pain in extremity [Unknown]
  - Sleep disorder [Unknown]
  - Neuropathy peripheral [Unknown]
